FAERS Safety Report 4668607-4 (Version None)
Quarter: 2005Q2

REPORT INFORMATION
  Report Type: 
  Country: None (occurrence: None)
  Receive Date: 20050519
  Receipt Date: 20050509
  Transmission Date: 20051028
  Serious: Yes (Hospitalization)
  Sender: FDA-Public Use
  Company Number: 163-20785-05040551

PATIENT
  Age: 53 Year
  Sex: Female

DRUGS (32)
  1. THALOMID [Suspect]
     Indication: MULTIPLE MYELOMA
     Dosage: 200 MG, QD, ORAL
     Route: 048
     Dates: start: 20040721, end: 20040901
  2. THALOMID [Suspect]
     Indication: MULTIPLE MYELOMA
     Dosage: 200 MG, QD, ORAL
     Route: 048
     Dates: start: 20041124, end: 20041219
  3. DEXAMETHASONE [Suspect]
     Dosage: SEE IMAGE
     Route: 048
     Dates: start: 20040721, end: 20040901
  4. DEXAMETHASONE [Suspect]
     Dosage: SEE IMAGE
     Route: 048
     Dates: start: 20050119, end: 20050122
  5. DEXAMETHASONE [Suspect]
     Dosage: SEE IMAGE
     Route: 048
     Dates: start: 20041206
  6. MELPHALAN (MELPHALAN) [Suspect]
     Indication: MULTIPLE MYELOMA
     Dosage: 298 MG, INTRAVENOUS
     Route: 042
     Dates: start: 20041014, end: 20041014
  7. MELPHALAN (MELPHALAN) [Suspect]
     Indication: MULTIPLE MYELOMA
     Dosage: 298 MG, INTRAVENOUS
     Route: 042
     Dates: start: 20050120, end: 20050120
  8. ARANESP [Concomitant]
  9. FOLIC ACID [Concomitant]
  10. NIFEREX (POLYSACCHARIDE- IRON- COMPLEX) [Concomitant]
  11. CALCIUM (CALCIUM) [Concomitant]
  12. FENTANYL PATCH (FENTANYL ) [Concomitant]
  13. LEVAQUIN [Concomitant]
  14. VORICONAZOLE (VORICONAZOLE) [Concomitant]
  15. ZANTAC [Concomitant]
  16. DIFLUCAN [Concomitant]
  17. AREDIA (PAMIDRONATE DISODIUM) (INJECTION FOR INFUSION) [Concomitant]
  18. VALCYTE (VALGANCICLOVIR HYDROCHLRIDE) [Concomitant]
  19. ACYCLOVIR [Concomitant]
  20. REGLAN [Concomitant]
  21. VANCOMYCIN [Concomitant]
  22. PHYTONADIONE [Concomitant]
  23. EMED (EMEDASTINE) [Suspect]
  24. PRIMAXIN (PRIMAXIN) [Concomitant]
  25. TOBRAMYCIN [Concomitant]
  26. IMODIUM [Concomitant]
  27. FLAGYL [Concomitant]
  28. SANDOSTATIN (OCTREOTIDE ACETATE) (INJECTION FOR INFUSION) [Concomitant]
  29. COMPAZINE [Concomitant]
  30. PROTONIX [Concomitant]
  31. PAXIL [Concomitant]
  32. ATIVAN [Concomitant]

REACTIONS (38)
  - ASCITES [None]
  - ATELECTASIS [None]
  - BLOOD LACTATE DEHYDROGENASE INCREASED [None]
  - BLOOD MAGNESIUM DECREASED [None]
  - C-REACTIVE PROTEIN INCREASED [None]
  - CHILLS [None]
  - CHOLECYSTITIS CHRONIC [None]
  - CHOLELITHIASIS [None]
  - COLITIS [None]
  - COMPLICATIONS OF TRANSPLANT SURGERY [None]
  - COUGH [None]
  - DIARRHOEA [None]
  - DRUG INTOLERANCE [None]
  - DRUG WITHDRAWAL SYNDROME [None]
  - FEELING COLD [None]
  - FEELING HOT [None]
  - FEELING JITTERY [None]
  - GAMMA-GLUTAMYLTRANSFERASE INCREASED [None]
  - GASTROINTESTINAL MUCOSAL DISORDER [None]
  - GASTROINTESTINAL TRACT MUCOSAL DISCOLOURATION [None]
  - HEART RATE INCREASED [None]
  - HIATUS HERNIA [None]
  - HYPOTENSION [None]
  - LEIOMYOMA [None]
  - LUNG INFECTION [None]
  - LUNG INFILTRATION [None]
  - MUCOSAL INFLAMMATION [None]
  - NAUSEA [None]
  - OEDEMA MUCOSAL [None]
  - PANCYTOPENIA [None]
  - PETECHIAE [None]
  - PLEURAL EFFUSION [None]
  - PYREXIA [None]
  - RHINORRHOEA [None]
  - STEM CELL TRANSPLANT [None]
  - SURGICAL PROCEDURE REPEATED [None]
  - VOMITING [None]
  - WHITE BLOOD CELL COUNT INCREASED [None]
